FAERS Safety Report 9882229 (Version 4)
Quarter: 2014Q3

REPORT INFORMATION
  Report Type: Spontaneous
  Country: US (occurrence: US)
  Receive Date: 20140207
  Receipt Date: 20140813
  Transmission Date: 20150326
  Serious: Yes (Hospitalization)
  Sender: FDA-Public Use
  Company Number: US-BAYER-2014-018861

PATIENT
  Age: 19 Year
  Sex: Female
  Weight: 59 kg

DRUGS (2)
  1. MIRENA [Suspect]
     Active Substance: LEVONORGESTREL
     Dosage: 20 MCG/24HR, CONT
     Route: 015
     Dates: start: 20070815, end: 20080718
  2. TYLENOL [Concomitant]
     Active Substance: ACETAMINOPHEN

REACTIONS (9)
  - Injury [None]
  - Uterine perforation [None]
  - Pain [None]
  - Psychological trauma [None]
  - Dyspareunia [None]
  - Depression [None]
  - Device breakage [None]
  - Emotional distress [None]
  - Scar [None]

NARRATIVE: CASE EVENT DATE: 200807
